FAERS Safety Report 6644785-2 (Version None)
Quarter: 2010Q1

REPORT INFORMATION
  Report Type: 
  Country: None (occurrence: None)
  Receive Date: 20100322
  Receipt Date: 20100310
  Transmission Date: 20100710
  Serious: Yes (Other)
  Sender: FDA-Public Use
  Company Number: GB-PFIZER INC-2010030877

PATIENT
  Age: 15 Year
  Sex: Male

DRUGS (5)
  1. MYCOBUTIN [Suspect]
     Indication: TUBERCULOSIS
     Dosage: 350 MG, 1X/DAY
  2. AMIKACIN [Suspect]
     Route: 042
  3. INSULIN [Concomitant]
  4. CLARITHROMYCIN [Concomitant]
  5. ITRACONAZOLE [Concomitant]

REACTIONS (2)
  - HALLUCINATION [None]
  - HEADACHE [None]
